FAERS Safety Report 17589086 (Version 1)
Quarter: 2020Q1

REPORT INFORMATION
  Report Type: Spontaneous
  Country: DE (occurrence: DE)
  Receive Date: 20200327
  Receipt Date: 20200327
  Transmission Date: 20200409
  Serious: Yes (Hospitalization, Other)
  Sender: FDA-Public Use
  Company Number: DE-TEVA-302010GER

PATIENT
  Age: 0 Day
  Sex: Female
  Weight: 4.27 kg

DRUGS (1)
  1. PAROXETIN [Suspect]
     Active Substance: PAROXETINE HYDROCHLORIDE
     Indication: DEPRESSION
     Dosage: 20 MG/D
     Route: 064

REACTIONS (5)
  - Neonatal seizure [Recovered/Resolved]
  - Neonatal respiratory failure [Recovered/Resolved]
  - Exposure during pregnancy [Recovered/Resolved]
  - Large for dates baby [Unknown]
  - Floppy infant [Recovered/Resolved]

NARRATIVE: CASE EVENT DATE: 20080925
